FAERS Safety Report 7078291-0 (Version None)
Quarter: 2010Q4

REPORT INFORMATION
  Report Type: 
  Country: None (occurrence: None)
  Receive Date: 20101101
  Receipt Date: 20101101
  Transmission Date: 20110411
  Serious: Yes (Life-Threatening, Hospitalization)
  Sender: FDA-Public Use
  Company Number: None

PATIENT
  Age: 46 Year
  Sex: Female
  Weight: 45.3597 kg

DRUGS (1)
  1. CLINDAMYCIN [Suspect]
     Indication: TOOTH ABSCESS
     Dates: start: 20090525, end: 20090605

REACTIONS (5)
  - DIARRHOEA [None]
  - GASTROINTESTINAL DISORDER [None]
  - LETHARGY [None]
  - PYREXIA [None]
  - WEIGHT DECREASED [None]
